FAERS Safety Report 17508822 (Version 2)
Quarter: 2020Q1

REPORT INFORMATION
  Report Type: Spontaneous
  Country: US (occurrence: US)
  Receive Date: 20200306
  Receipt Date: 20200320
  Transmission Date: 20200409
  Serious: No
  Sender: FDA-Public Use
  Company Number: US-ALEXION PHARMACEUTICALS INC.-A202002690

PATIENT
  Age: 46 Year
  Sex: Female

DRUGS (4)
  1. SOLIRIS [Suspect]
     Active Substance: ECULIZUMAB
     Indication: THROMBOCYTOPENIA
  2. SOLIRIS [Suspect]
     Active Substance: ECULIZUMAB
     Indication: OFF LABEL USE
  3. SOLIRIS [Suspect]
     Active Substance: ECULIZUMAB
     Indication: ALLOIMMUNISATION
  4. SOLIRIS [Suspect]
     Active Substance: ECULIZUMAB
     Indication: PLATELET TRANSFUSION
     Dosage: 1200 MG, SINGLE
     Route: 042

REACTIONS (1)
  - Off label use [Recovered/Resolved]
